FAERS Safety Report 10267362 (Version 1)
Quarter: 2014Q2

REPORT INFORMATION
  Report Type: Spontaneous
  Country: US (occurrence: None)
  Receive Date: 20140626
  Receipt Date: 20140626
  Transmission Date: 20141212
  Serious: Yes (Hospitalization)
  Sender: FDA-Public Use
  Company Number: None

PATIENT
  Age: 84 Year
  Sex: Male
  Weight: 72.1 kg

DRUGS (1)
  1. BENDAMUSTINE HYDROCHLORIDE [Suspect]

REACTIONS (6)
  - Pneumonia [None]
  - Neutropenic sepsis [None]
  - Anaemia [None]
  - Thrombocytopenia [None]
  - Leukopenia [None]
  - Myelodysplastic syndrome [None]
